FAERS Safety Report 4681353-6 (Version None)
Quarter: 2005Q2

REPORT INFORMATION
  Report Type: 
  Country: None (occurrence: None)
  Receive Date: 20050601
  Receipt Date: 20050523
  Transmission Date: 20051028
  Serious: Yes (Hospitalization)
  Sender: FDA-Public Use
  Company Number: 230112M05USA

PATIENT
  Age: 52 Year
  Sex: Female
  Weight: 66.6788 kg

DRUGS (10)
  1. REBIF [Suspect]
     Indication: MULTIPLE SCLEROSIS
     Dosage: 44 MCG, 3 IN 1 WEEKS, SUBCUTANEOUS
     Route: 058
     Dates: start: 20020101
  2. ZANAFLEX [Concomitant]
  3. NEURONTIN [Concomitant]
  4. PROVIGIL [Concomitant]
  5. BACLOFEN [Concomitant]
  6. SYNTHROID [Concomitant]
  7. MULTIVITAMIN [Concomitant]
  8. CALCIUM PLUS VITAMIN D (CALCIUM WITH VITAMIN D) [Concomitant]
  9. VITAMIN C (ASCORBIC ACID) [Concomitant]
  10. IRON (IRON) [Concomitant]

REACTIONS (8)
  - ANAEMIA [None]
  - APPENDICECTOMY [None]
  - ARTHRALGIA [None]
  - OSTEOARTHRITIS [None]
  - PROGRESSIVE MULTIPLE SCLEROSIS [None]
  - SARCOIDOSIS [None]
  - SILICOSIS [None]
  - WHITE BLOOD CELL COUNT DECREASED [None]
